FAERS Safety Report 10839389 (Version 1)
Quarter: 2015Q1

REPORT INFORMATION
  Report Type: Report from Study
  Country: US (occurrence: US)
  Receive Date: 20150220
  Receipt Date: 20150220
  Transmission Date: 20150721
  Serious: No
  Sender: FDA-Public Use
  Company Number: US-ABBVIE-14P-163-1232228-00

PATIENT
  Age: 43 Year
  Sex: Female
  Weight: 96.25 kg

DRUGS (8)
  1. EFFEXOR [Concomitant]
     Active Substance: VENLAFAXINE HYDROCHLORIDE
     Indication: CATAPLEXY
  2. EFFEXOR [Concomitant]
     Active Substance: VENLAFAXINE HYDROCHLORIDE
     Indication: PAIN MANAGEMENT
  3. HUMIRA [Suspect]
     Active Substance: ADALIMUMAB
     Indication: CROHN^S DISEASE
     Dosage: INITIAL DOSE
     Dates: start: 20140213, end: 20140213
  4. HUMIRA [Suspect]
     Active Substance: ADALIMUMAB
     Dosage: ON DAY 15
     Dates: start: 20140227, end: 20140227
  5. FLUTICASONE [Concomitant]
     Active Substance: FLUTICASONE\FLUTICASONE PROPIONATE
     Indication: HYPERSENSITIVITY
     Route: 045
     Dates: start: 201402
  6. TRAMADOL [Concomitant]
     Active Substance: TRAMADOL
     Indication: CROHN^S DISEASE
  7. NUVIGIL [Concomitant]
     Active Substance: ARMODAFINIL
     Indication: NARCOLEPSY
  8. HUMIRA [Suspect]
     Active Substance: ADALIMUMAB
     Dates: start: 201403

REACTIONS (8)
  - Weight increased [Not Recovered/Not Resolved]
  - Dyspnoea [Recovered/Resolved]
  - Oropharyngeal pain [Recovered/Resolved]
  - Influenza [Recovered/Resolved]
  - Headache [Recovered/Resolved]
  - Asthma [Not Recovered/Not Resolved]
  - Pain [Recovered/Resolved]
  - Pleurisy [Recovered/Resolved]

NARRATIVE: CASE EVENT DATE: 2014
